FAERS Safety Report 19753068 (Version 2)
Quarter: 2021Q3

REPORT INFORMATION
  Report Type: Spontaneous
  Country: CA (occurrence: CA)
  Receive Date: 20210826
  Receipt Date: 20210907
  Transmission Date: 20211014
  Serious: Yes (Life-Threatening, Hospitalization, Other)
  Sender: FDA-Public Use
  Company Number: CA-TEVA-2021-CA-1944734

PATIENT
  Age: 23 Year
  Sex: Male

DRUGS (1)
  1. QUININE [Suspect]
     Active Substance: QUININE
     Indication: INTENTIONAL OVERDOSE
     Route: 048

REACTIONS (5)
  - Intentional overdose [Unknown]
  - Toxicity to various agents [Unknown]
  - Suicide attempt [Recovering/Resolving]
  - Toxic optic neuropathy [Recovering/Resolving]
  - Coma [Recovered/Resolved]
